FAERS Safety Report 7481806-1 (Version None)
Quarter: 2011Q2

REPORT INFORMATION
  Report Type: 
  Country: None (occurrence: None)
  Receive Date: 20110516
  Receipt Date: 20110502
  Transmission Date: 20111010
  Serious: Yes (Other)
  Sender: FDA-Public Use
  Company Number: US-ELI_LILLY_AND_COMPANY-US201103003540

PATIENT
  Sex: Female

DRUGS (10)
  1. VITAMINS [Concomitant]
     Dosage: UNK
     Route: 065
  2. FORTEO [Suspect]
     Indication: OSTEOPOROSIS
     Dosage: UNK, DAILY (1/D)
     Dates: start: 20091101
  3. COUMADIN [Concomitant]
     Dosage: UNK
     Route: 065
  4. FIBER [Concomitant]
  5. CALCIUM [Concomitant]
     Dosage: UNK
     Route: 065
  6. LOVASTATIN [Concomitant]
     Dosage: UNK
     Route: 065
  7. LOTREL [Concomitant]
     Dosage: UNK
     Route: 065
  8. PAXIL [Concomitant]
     Dosage: UNK
     Route: 065
  9. SYNTHROID [Concomitant]
     Dosage: UNK
     Route: 065
  10. PRILOSEC [Concomitant]
     Dosage: UNK
     Route: 065

REACTIONS (3)
  - UPPER LIMB FRACTURE [None]
  - FALL [None]
  - SYNCOPE [None]
